FAERS Safety Report 19100695 (Version 1)
Quarter: 2021Q2

REPORT INFORMATION
  Report Type: Spontaneous
  Country: US (occurrence: US)
  Receive Date: 20210407
  Receipt Date: 20210407
  Transmission Date: 20210717
  Serious: No
  Sender: FDA-Public Use
  Company Number: US-JNJFOC-20210359643

PATIENT
  Age: 48 Year
  Sex: Male

DRUGS (2)
  1. STELARA [Suspect]
     Active Substance: USTEKINUMAB
  2. STELARA [Suspect]
     Active Substance: USTEKINUMAB
     Indication: PRODUCT USED FOR UNKNOWN INDICATION
     Route: 058
     Dates: start: 2021

REACTIONS (5)
  - Therapeutic response decreased [Unknown]
  - Pain [Unknown]
  - Dry skin [Unknown]
  - Inflammation [Unknown]
  - Arthritis [Unknown]

NARRATIVE: CASE EVENT DATE: 20210330
